FAERS Safety Report 6070538-2 (Version None)
Quarter: 2009Q1

REPORT INFORMATION
  Report Type: 
  Country: None (occurrence: None)
  Receive Date: 20090209
  Receipt Date: 20090129
  Transmission Date: 20090719
  Serious: Yes (Hospitalization, Other)
  Sender: FDA-Public Use
  Company Number: DE-ROCHE-600963

PATIENT
  Sex: Female
  Weight: 88 kg

DRUGS (14)
  1. METHOXY POLYETHYLENE GLYCOL-EPOETIN BETA [Suspect]
     Dosage: FORM REPORTED AS SYRINGE.
     Route: 058
     Dates: start: 20080505
  2. PENTALONG [Concomitant]
     Dates: start: 20020201
  3. ASPIRIN [Concomitant]
     Dates: start: 20020201
  4. KINZALKOMB [Concomitant]
     Dosage: TTD REPORTED AS 80/12 MG.
     Dates: start: 20071001
  5. AVANDAMET [Concomitant]
     Dosage: TTD REPORTED AS 4/2000 MG.
     Dates: start: 20071001
  6. SINVALIP [Concomitant]
     Dates: start: 20071001
  7. RAMIPRIL [Concomitant]
     Dosage: TTD REPORTED AS 5/25 MG.
     Dates: start: 20070401
  8. AMARYL [Concomitant]
     Dates: start: 20080602
  9. FERRO SANOL DUODENAL [Concomitant]
     Dates: start: 20080707
  10. METOHEXAL SUCC [Concomitant]
     Dates: start: 20080707
  11. TORSEMIDE [Concomitant]
     Dates: start: 20080804
  12. LIMPTAR [Concomitant]
     Dates: start: 20080804
  13. MAGNESIUM SULFATE [Concomitant]
     Dates: start: 20080804
  14. AMLODIPINE [Concomitant]
     Dates: start: 20080115

REACTIONS (2)
  - ANAEMIA [None]
  - PULMONARY EMBOLISM [None]
